FAERS Safety Report 4546719-3 (Version None)
Quarter: 2005Q1

REPORT INFORMATION
  Report Type: 
  Country: None (occurrence: None)
  Receive Date: 20050105
  Receipt Date: 20041222
  Transmission Date: 20050727
  Serious: Yes (Hospitalization, Other)
  Sender: FDA-Public Use
  Company Number: HU-2004-036235

PATIENT
  Age: 83 Year
  Sex: Female

DRUGS (8)
  1. ULTRAVIST 300 [Suspect]
     Indication: COMPUTERISED TOMOGRAM
     Dosage: 100 ML, 1 DOSE, INTRAVENOUS
     Route: 042
     Dates: start: 20041130, end: 20041130
  2. ENALAPRIL (ENALAPRIL) [Concomitant]
  3. NITROGLYCERIN ^DAK^ [Concomitant]
  4. BETAXOLOL [Concomitant]
  5. VINPOCETINE (VINPOCETINE) [Concomitant]
  6. ASTRIX (ACETYLSALICYLIC ACID) [Concomitant]
  7. NORVASC [Concomitant]
  8. PHYSIOTENS ^GIULINI^ (MOXONIDINE) [Concomitant]

REACTIONS (6)
  - BLOOD PRESSURE SYSTOLIC INCREASED [None]
  - CHEST PAIN [None]
  - COMPUTERISED TOMOGRAM ABNORMAL [None]
  - LEFT VENTRICULAR FAILURE [None]
  - LUNG DISORDER [None]
  - THERAPY NON-RESPONDER [None]
